FAERS Safety Report 20543208 (Version 1)
Quarter: 2022Q1

REPORT INFORMATION
  Report Type: Spontaneous
  Country: US (occurrence: None)
  Receive Date: 20220302
  Receipt Date: 20220302
  Transmission Date: 20220424
  Serious: No
  Sender: FDA-Public Use
  Company Number: US-ROCHE-2852838

PATIENT
  Sex: Male

DRUGS (1)
  1. NUTROPIN AQ [Suspect]
     Active Substance: SOMATROPIN
     Indication: Chronic kidney disease
     Dosage: THERAPY STATUS:  ONGOING: YES
     Route: 065
     Dates: start: 20200805

REACTIONS (2)
  - Off label use [Unknown]
  - No adverse event [Unknown]
